FAERS Safety Report 14009218 (Version 4)
Quarter: 2017Q4

REPORT INFORMATION
  Report Type: Spontaneous
  Country: AR (occurrence: AR)
  Receive Date: 20170925
  Receipt Date: 20171019
  Transmission Date: 20180321
  Serious: Yes (Hospitalization)
  Sender: FDA-Public Use
  Company Number: PHHY2017AR139037

PATIENT
  Age: 73 Year
  Sex: Male

DRUGS (4)
  1. TACROLIMUS. [Suspect]
     Active Substance: TACROLIMUS
     Dosage: 5 MG, UNK
     Route: 065
  2. TACROLIMUS. [Suspect]
     Active Substance: TACROLIMUS
     Indication: PRODUCT USED FOR UNKNOWN INDICATION
     Dosage: 1 MG, UNK
     Route: 065
  3. TACROLIMUS. [Suspect]
     Active Substance: TACROLIMUS
     Dosage: 0.5 MG, UNK
     Route: 065
  4. TACROLIMUS. [Suspect]
     Active Substance: TACROLIMUS
     Dosage: 0.5 MG, UNK
     Route: 065

REACTIONS (8)
  - Overdose [Recovering/Resolving]
  - Gastric disorder [Recovering/Resolving]
  - Oedema [Recovering/Resolving]
  - Product label counterfeit [Recovering/Resolving]
  - Tremor [Recovering/Resolving]
  - Dehydration [Recovering/Resolving]
  - Fluid retention [Recovering/Resolving]
  - Renal impairment [Recovering/Resolving]

NARRATIVE: CASE EVENT DATE: 201708
